FAERS Safety Report 10213151 (Version 2)
Quarter: 2014Q2

REPORT INFORMATION
  Report Type: Spontaneous
  Country: FR (occurrence: FR)
  Receive Date: 20140603
  Receipt Date: 20140603
  Transmission Date: 20141212
  Serious: Yes (Hospitalization)
  Sender: FDA-Public Use
  Company Number: FR-PFIZER INC-2014115729

PATIENT
  Age: 78 Year
  Sex: Male

DRUGS (10)
  1. CORDARONE [Suspect]
     Dosage: UNK
     Route: 048
     Dates: start: 201009
  2. INIPOMP [Suspect]
     Dosage: 20 MG, UNK
     Route: 048
  3. FUROSEMIDE [Suspect]
     Dosage: 40 MG, 1X/DAY
     Route: 048
  4. PLAVIX [Suspect]
     Dosage: UNK
     Route: 048
     Dates: start: 2009
  5. ATENOLOL [Suspect]
     Dosage: 50 MG, 1X/DAY
     Route: 048
  6. KARDEGIC [Suspect]
     Dosage: 75MG, UNK
     Route: 048
  7. LOXEN [Suspect]
     Dosage: 50MG, UNK
     Route: 048
  8. ZYLORIC [Suspect]
     Dosage: 100MG, UNK
     Route: 048
  9. DIAMICRON [Suspect]
     Dosage: 30MG, UNK
     Route: 048
  10. DIFFU K [Concomitant]
     Dosage: UNK

REACTIONS (2)
  - Interstitial lung disease [Recovering/Resolving]
  - Pulmonary fibrosis [Recovering/Resolving]
